FAERS Safety Report 4274637-7 (Version None)
Quarter: 2004Q1

REPORT INFORMATION
  Report Type: 
  Country: None (occurrence: None)
  Receive Date: 20040120
  Receipt Date: 20040114
  Transmission Date: 20041129
  Serious: Yes (Other)
  Sender: FDA-Public Use
  Company Number: PHBS2004SE00847

PATIENT
  Sex: Male
  Weight: 30 kg

DRUGS (2)
  1. RITALIN [Suspect]
     Indication: ATTENTION DEFICIT/HYPERACTIVITY DISORDER
     Dosage: 0.5 MG/DAY
     Route: 048
     Dates: start: 19970101
  2. RITALIN [Suspect]
     Dosage: 60 MG/DAY
     Route: 048
     Dates: end: 20010101

REACTIONS (10)
  - ABDOMINAL PAIN UPPER [None]
  - AGGRESSION [None]
  - DECREASED APPETITE [None]
  - DEPRESSION [None]
  - DRY MOUTH [None]
  - HALLUCINATION [None]
  - PALPITATIONS [None]
  - PSYCHOMOTOR HYPERACTIVITY [None]
  - SLEEP DISORDER [None]
  - SUICIDAL IDEATION [None]
